FAERS Safety Report 5923366-X (Version None)
Quarter: 2008Q4

REPORT INFORMATION
  Report Type: 
  Country: None (occurrence: None)
  Receive Date: 20081020
  Receipt Date: 20081013
  Transmission Date: 20090506
  Serious: Yes (Other)
  Sender: FDA-Public Use
  Company Number: US-ROCHE-591328

PATIENT
  Age: 64 Year
  Sex: Female

DRUGS (3)
  1. BONIVA [Suspect]
     Indication: OSTEOPOROSIS
     Route: 065
  2. URSO FORTE [Concomitant]
  3. 1 CONCOMITANT DRUG [Concomitant]
     Dosage: DRUG REPORTED AS: EYE DROPS

REACTIONS (1)
  - INTRAOCULAR PRESSURE INCREASED [None]
